FAERS Safety Report 10626513 (Version 1)
Quarter: 2014Q4

REPORT INFORMATION
  Report Type: Spontaneous
  Country: US (occurrence: US)
  Receive Date: 20141204
  Receipt Date: 20141204
  Transmission Date: 20150529
  Serious: No
  Sender: FDA-Public Use
  Company Number: US-BAYER-2014-179578

PATIENT
  Age: 89 Year
  Sex: Female
  Weight: 73.47 kg

DRUGS (11)
  1. VITAMIN B12 NOS [Concomitant]
  2. BAYER LOW DOSE [Concomitant]
     Active Substance: ASPIRIN
  3. ATENOLOL AND CHLORTHALIDONE [Concomitant]
     Active Substance: ATENOLOL\CHLORTHALIDONE
  4. VITAMIN D [Concomitant]
     Active Substance: CHOLECALCIFEROL
  5. ALEVE [Suspect]
     Active Substance: NAPROXEN SODIUM
     Indication: ANALGESIC THERAPY
     Dosage: 1 DF, BID
     Route: 048
     Dates: start: 201408
  6. ATENOLOL. [Concomitant]
     Active Substance: ATENOLOL
  7. METFORMIN [Concomitant]
     Active Substance: METFORMIN HYDROCHLORIDE
  8. POTASSIUM [POTASSIUM] [Concomitant]
  9. FOLIC ACID. [Concomitant]
     Active Substance: FOLIC ACID
  10. ALEVE [Suspect]
     Active Substance: NAPROXEN SODIUM
     Indication: ARTHRITIS
     Dosage: UNK UNK, PRN
  11. MAGNESIUM [Concomitant]
     Active Substance: MAGNESIUM

REACTIONS (1)
  - Incorrect drug administration duration [Unknown]

NARRATIVE: CASE EVENT DATE: 201408
